FAERS Safety Report 4969097-4 (Version None)
Quarter: 2006Q2

REPORT INFORMATION
  Report Type: 
  Country: None (occurrence: None)
  Receive Date: 20060411
  Receipt Date: 20060411
  Transmission Date: 20061013
  Serious: Yes (Hospitalization)
  Sender: FDA-Public Use
  Company Number: 200611968EU

PATIENT
  Age: 66 Year
  Sex: Female

DRUGS (8)
  1. NICODERM [Suspect]
     Dosage: 21MG PER DAY
     Route: 062
     Dates: start: 20060301, end: 20060301
  2. UNSPECIFIED MEDICATION [Concomitant]
     Indication: NERVOUS SYSTEM DISORDER
     Dates: start: 20051101
  3. FAMOTIDINE [Concomitant]
     Indication: GASTRIC DISORDER
     Dates: start: 20030101
  4. ESTRADIOL [Concomitant]
     Indication: HORMONE REPLACEMENT THERAPY
     Dates: start: 19860101
  5. OXYCOCET [Concomitant]
     Indication: PAIN
     Route: 048
     Dates: start: 20050101
  6. CELECOXIB [Concomitant]
     Indication: ARTHRITIS
     Dates: start: 20040101
  7. OXYCODONE HCL [Concomitant]
     Indication: ARTHRITIS
     Dates: start: 20050901
  8. TRAZODONE [Concomitant]
     Indication: PAIN
     Dates: start: 20050101

REACTIONS (8)
  - CEREBROVASCULAR ACCIDENT [None]
  - CHEST PAIN [None]
  - CHILLS [None]
  - CIRCULATORY COLLAPSE [None]
  - HYPOAESTHESIA [None]
  - HYPOAESTHESIA ORAL [None]
  - MOVEMENT DISORDER [None]
  - ORAL DISCOMFORT [None]
